FAERS Safety Report 5153042-5 (Version None)
Quarter: 2006Q4

REPORT INFORMATION
  Report Type: 
  Country: None (occurrence: None)
  Receive Date: 20061117
  Receipt Date: 20060530
  Transmission Date: 20070319
  Serious: Yes (Life-Threatening)
  Sender: FDA-Public Use
  Company Number: PHBS2006JP07840

PATIENT
  Age: 57 Year
  Sex: Male
  Weight: 55 kg

DRUGS (7)
  1. MAGMITT KENEI [Concomitant]
     Dosage: 1500 MG/D
     Route: 048
     Dates: start: 20060523
  2. MARZULENE S [Concomitant]
     Dosage: 1.5 G/D
     Route: 048
     Dates: start: 20060523
  3. SOLANAX [Concomitant]
     Dosage: 0.4 MG/D
     Route: 048
     Dates: start: 20060523
  4. AMOBAN [Concomitant]
     Dosage: 7.5 MG/D
     Route: 048
     Dates: start: 20060523
  5. LOXONIN [Concomitant]
     Dosage: 1 DF/D
     Route: 048
     Dates: start: 20060523
  6. OXYCONTIN [Concomitant]
     Dosage: 10 MG/D
     Route: 048
     Dates: start: 20060524
  7. ZOMETA [Suspect]
     Indication: METASTASES TO BONE
     Dosage: 4 MG, UNK
     Route: 042
     Dates: start: 20060529, end: 20060529

REACTIONS (20)
  - ALANINE AMINOTRANSFERASE INCREASED [None]
  - ANURIA [None]
  - ASPARTATE AMINOTRANSFERASE INCREASED [None]
  - BLOOD ALKALINE PHOSPHATASE INCREASED [None]
  - BLOOD CREATININE INCREASED [None]
  - BLOOD LACTATE DEHYDROGENASE INCREASED [None]
  - BLOOD UREA INCREASED [None]
  - GAMMA-GLUTAMYLTRANSFERASE ABNORMAL [None]
  - HAEMATOCRIT DECREASED [None]
  - HAEMODIALYSIS [None]
  - HAEMOGLOBIN DECREASED [None]
  - HEPATIC FUNCTION ABNORMAL [None]
  - HYDRONEPHROSIS [None]
  - PLATELET COUNT DECREASED [None]
  - POSTRENAL FAILURE [None]
  - PYREXIA [None]
  - RED BLOOD CELL COUNT DECREASED [None]
  - RENAL FAILURE ACUTE [None]
  - RENAL TUBULAR NECROSIS [None]
  - URETERAL CATHETERISATION [None]
